FAERS Safety Report 17233137 (Version 2)
Quarter: 2020Q1

REPORT INFORMATION
  Report Type: Spontaneous
  Country: FR (occurrence: FR)
  Receive Date: 20200104
  Receipt Date: 20200219
  Transmission Date: 20200409
  Serious: Yes (Other)
  Sender: FDA-Public Use
  Company Number: NVSC2019FR085018

PATIENT
  Age: 52 Year
  Sex: Female

DRUGS (2)
  1. ZIEXTENZO [Suspect]
     Active Substance: PEGFILGRASTIM-BMEZ
     Indication: BREAST CANCER
     Dosage: UNK
     Route: 065
     Dates: start: 20191008
  2. ZIEXTENZO [Suspect]
     Active Substance: PEGFILGRASTIM-BMEZ
     Dosage: UNK
     Route: 065
     Dates: start: 20191029

REACTIONS (5)
  - Oedema [Unknown]
  - Skin plaque [Unknown]
  - Toxic epidermal necrolysis [Unknown]
  - Paraesthesia [Unknown]
  - Necrosis [Unknown]

NARRATIVE: CASE EVENT DATE: 20191008
